FAERS Safety Report 5917523-6 (Version None)
Quarter: 2008Q4

REPORT INFORMATION
  Report Type: 
  Country: None (occurrence: None)
  Receive Date: 20081014
  Receipt Date: 20080929
  Transmission Date: 20090506
  Serious: Yes (Hospitalization)
  Sender: FDA-Public Use
  Company Number: GB-GENENTECH-269514

PATIENT
  Age: 36 Year
  Sex: Male

DRUGS (4)
  1. MABTHERA [Suspect]
     Indication: CASTLEMAN'S DISEASE
     Dosage: 375 MG/M2, UNK
  2. EMTRICITABINE [Concomitant]
     Indication: HIV INFECTION
     Dosage: 200 MG, QD
  3. TENOFOVIR [Concomitant]
     Indication: HIV INFECTION
     Dosage: 300 MG, QD
  4. EFAVIRENZ [Concomitant]
     Indication: HIV INFECTION
     Dosage: 600 MG, QD

REACTIONS (2)
  - CASTLEMAN'S DISEASE [None]
  - MULTI-ORGAN FAILURE [None]
